FAERS Safety Report 21917036 (Version 1)
Quarter: 2023Q1

REPORT INFORMATION
  Report Type: Spontaneous
  Country: US (occurrence: US)
  Receive Date: 20230126
  Receipt Date: 20230126
  Transmission Date: 20230417
  Serious: No
  Sender: FDA-Public Use
  Company Number: US-SANOFI-01456271

PATIENT
  Age: 43 Year
  Sex: Male

DRUGS (1)
  1. DUPIXENT [Suspect]
     Active Substance: DUPILUMAB
     Indication: Asthma
     Dosage: UNK
     Dates: start: 20230120

REACTIONS (3)
  - Injection site pain [Unknown]
  - Injection site mass [Unknown]
  - Injection site discharge [Unknown]

NARRATIVE: CASE EVENT DATE: 20230120
